FAERS Safety Report 4882851-2 (Version None)
Quarter: 2005Q4

REPORT INFORMATION
  Report Type: 
  Country: None (occurrence: None)
  Receive Date: 20051201
  Receipt Date: 20050925
  Transmission Date: 20060501
  Serious: No
  Sender: FDA-Public Use
  Company Number: 2005PV002542

PATIENT
  Age: 55 Year
  Sex: Male
  Weight: 113.3993 kg

DRUGS (3)
  1. BYETTA [Suspect]
     Indication: DRUG USE FOR UNKNOWN INDICATION
     Dosage: 5 MCG;BID;SC
     Route: 058
     Dates: start: 20050908
  2. AMARYL [Concomitant]
  3. NICORETTE [Concomitant]

REACTIONS (11)
  - ABDOMINAL DISTENSION [None]
  - CHANGE OF BOWEL HABIT [None]
  - DECREASED APPETITE [None]
  - DIZZINESS [None]
  - EARLY SATIETY [None]
  - ERUCTATION [None]
  - GASTROENTERITIS VIRAL [None]
  - HEADACHE [None]
  - INJECTION SITE BRUISING [None]
  - MALAISE [None]
  - NAUSEA [None]
